FAERS Safety Report 6055647-6 (Version None)
Quarter: 2009Q1

REPORT INFORMATION
  Report Type: 
  Country: None (occurrence: None)
  Receive Date: 20090123
  Receipt Date: 20090109
  Transmission Date: 20090719
  Serious: Yes (Other)
  Sender: FDA-Public Use
  Company Number: 8034731

PATIENT
  Age: 32 Year
  Sex: Female

DRUGS (12)
  1. KEPPRA [Suspect]
     Indication: EPILEPSY
     Dosage: 1000 MG /D
     Dates: start: 20080501, end: 20080601
  2. KEPPRA [Suspect]
     Indication: EPILEPSY
     Dosage: 1500 MG /D
     Dates: start: 20080601, end: 20080701
  3. KEPPRA [Suspect]
     Indication: EPILEPSY
     Dosage: 2000 MG /D
     Dates: start: 20080702, end: 20081109
  4. KEPPRA [Suspect]
     Indication: EPILEPSY
     Dosage: 3000 MG /D PO
     Route: 048
     Dates: start: 20081109
  5. DIASTAT [Concomitant]
  6. ZOFRAN [Concomitant]
  7. VITAMIN TAB [Concomitant]
  8. LOVAZA [Concomitant]
  9. NORCO [Concomitant]
  10. TEGRETOL [Concomitant]
  11. VISTARIL [Concomitant]
  12. BUSPAR [Concomitant]

REACTIONS (3)
  - DRUG EXPOSURE DURING PREGNANCY [None]
  - NAUSEA [None]
  - PREMATURE LABOUR [None]
